FAERS Safety Report 6173396-0 (Version None)
Quarter: 2009Q2

REPORT INFORMATION
  Report Type: 
  Country: None (occurrence: None)
  Receive Date: 20090428
  Receipt Date: 20090421
  Transmission Date: 20091009
  Serious: Yes (Disabling)
  Sender: FDA-Public Use
  Company Number: 09GB000866

PATIENT
  Age: 76 Year
  Sex: Female
  Weight: 90 kg

DRUGS (5)
  1. LORATADINE [Suspect]
     Indication: HYPERSENSITIVITY
     Dosage: 10 MG, QD, ORAL
     Route: 048
     Dates: start: 20081001, end: 20081201
  2. ASPIRIN [Concomitant]
  3. BECLOMETHASONE DIPROPIONATE [Concomitant]
  4. LOSARTAN POTASSIUM [Concomitant]
  5. VENTOLIN (BECLOMETASONE DIPROPIONATE, SALBUTAMOL) [Concomitant]

REACTIONS (1)
  - MUSCLE SPASMS [None]
